FAERS Safety Report 8339074-4 (Version None)
Quarter: 2012Q2

REPORT INFORMATION
  Report Type: 
  Country: None (occurrence: None)
  Receive Date: 20120507
  Receipt Date: 20120426
  Transmission Date: 20120825
  Serious: Yes (Other)
  Sender: FDA-Public Use
  Company Number: JP-VERTEX PHARMACEUTICALS INC.-AE-2012-006228

PATIENT
  Age: 64 Year
  Sex: Male

DRUGS (7)
  1. PEGINTERFERON ALFA-2B [Concomitant]
     Indication: HEPATITIS C
     Route: 051
     Dates: start: 20120123
  2. DIBETOS [Concomitant]
     Route: 048
  3. URSO 250 [Concomitant]
     Route: 048
  4. RIBAVIRIN [Concomitant]
     Indication: HEPATITIS C
     Route: 048
     Dates: start: 20120123
  5. TELAVIC (TELAPREVIR) [Suspect]
     Indication: HEPATITIS C
     Route: 048
     Dates: start: 20120123, end: 20120416
  6. GLIMICRON [Concomitant]
     Route: 048
  7. JANUVIA [Concomitant]
     Route: 048

REACTIONS (1)
  - RETINOPATHY [None]
